FAERS Safety Report 6903501-7 (Version None)
Quarter: 2010Q3

REPORT INFORMATION
  Report Type: 
  Country: None (occurrence: None)
  Receive Date: 20100803
  Receipt Date: 20081016
  Transmission Date: 20110219
  Serious: No
  Sender: FDA-Public Use
  Company Number: US-PFIZER INC-2008087687

PATIENT
  Sex: Female
  Weight: 58.06 kg

DRUGS (4)
  1. LYRICA [Suspect]
     Indication: FIBROMYALGIA
     Route: 048
     Dates: start: 20080201
  2. TOPAMAX [Concomitant]
  3. CYMBALTA [Concomitant]
  4. ORAL CONTRACEPTIVE NOS [Concomitant]

REACTIONS (8)
  - ABDOMINAL DISTENSION [None]
  - BLISTER [None]
  - DISTURBANCE IN ATTENTION [None]
  - DRY MOUTH [None]
  - FATIGUE [None]
  - RASH [None]
  - VISUAL IMPAIRMENT [None]
  - WEIGHT INCREASED [None]
